APPROVED DRUG PRODUCT: SULFAMETHOXAZOLE AND TRIMETHOPRIM DOUBLE STRENGTH
Active Ingredient: SULFAMETHOXAZOLE; TRIMETHOPRIM
Strength: 800MG;160MG
Dosage Form/Route: TABLET;ORAL
Application: N018854 | Product #001
Applicant: WATSON LABORATORIES INC
Approved: May 9, 1983 | RLD: No | RS: No | Type: DISCN